FAERS Safety Report 21285865 (Version 2)
Quarter: 2022Q4

REPORT INFORMATION
  Report Type: Spontaneous
  Country: US (occurrence: US)
  Receive Date: 20220902
  Receipt Date: 20221014
  Transmission Date: 20230112
  Serious: Yes (Other)
  Sender: FDA-Public Use
  Company Number: US-GSKCCFUS-Case-01481714_AE-84593

PATIENT
  Age: 59 Year
  Sex: Female

DRUGS (1)
  1. VALTREX [Suspect]
     Active Substance: VALACYCLOVIR HYDROCHLORIDE
     Indication: Herpes zoster
     Dosage: UNK
     Dates: start: 20220822, end: 20220827

REACTIONS (9)
  - Hallucination, visual [Recovered/Resolved]
  - Vision blurred [Recovering/Resolving]
  - Photosensitivity reaction [Recovering/Resolving]
  - Dyschromatopsia [Unknown]
  - Dizziness [Recovering/Resolving]
  - Thinking abnormal [Unknown]
  - Nausea [Unknown]
  - Impaired work ability [Unknown]
  - Off label use [Unknown]

NARRATIVE: CASE EVENT DATE: 20220822
